FAERS Safety Report 8511998-4 (Version None)
Quarter: 2012Q3

REPORT INFORMATION
  Report Type: 
  Country: None (occurrence: None)
  Receive Date: 20120716
  Receipt Date: 20120709
  Transmission Date: 20120928
  Serious: Yes (Other)
  Sender: FDA-Public Use
  Company Number: US-ABBOTT-12P-163-0911806-00

PATIENT
  Sex: Female
  Weight: 52.21 kg

DRUGS (4)
  1. HUMIRA [Suspect]
     Indication: CROHN'S DISEASE
     Dates: start: 20080401
  2. PREDNISONE [Concomitant]
     Indication: PRODUCT USED FOR UNKNOWN INDICATION
     Dosage: 10 MG DAILY: WAS BEING WEANED OFF
  3. HUMIRA [Suspect]
     Dates: start: 20111201, end: 20120201
  4. HUMIRA [Suspect]
     Dates: end: 20120101

REACTIONS (8)
  - IMPAIRED HEALING [None]
  - HYSTERECTOMY [None]
  - POST PROCEDURAL INFECTION [None]
  - BENIGN BREAST NEOPLASM [None]
  - NERVE INJURY [None]
  - INTERVERTEBRAL DISC PROTRUSION [None]
  - BACK PAIN [None]
  - DIARRHOEA [None]
